FAERS Safety Report 10036842 (Version 1)
Quarter: 2014Q1

REPORT INFORMATION
  Report Type: Other
  Country: GB (occurrence: GB)
  Receive Date: 20140326
  Receipt Date: 20140326
  Transmission Date: 20141002
  Serious: Yes (Hospitalization)
  Sender: FDA-Public Use
  Company Number: GB-SUN PHARMACEUTICAL INDUSTRIES LTD-2014SUN00613

PATIENT
  Sex: 0

DRUGS (2)
  1. VENLAFAXINE HYDROCHLORIDE 37.5MG TABLET [Suspect]
     Indication: PRODUCT USED FOR UNKNOWN INDICATION
     Dosage: 6.3G OVERDOSE
     Route: 048
     Dates: start: 20140213, end: 20140227
  2. OLANZAPINE [Concomitant]

REACTIONS (8)
  - Acidosis [Recovering/Resolving]
  - Acute hepatic failure [Recovered/Resolved]
  - Renal failure acute [Recovering/Resolving]
  - Dyspnoea [Recovering/Resolving]
  - Ventricular tachycardia [Recovering/Resolving]
  - Convulsion [Recovering/Resolving]
  - Toxicity to various agents [Recovering/Resolving]
  - Intentional overdose [Unknown]
